FAERS Safety Report 10196189 (Version 1)
Quarter: 2014Q2

REPORT INFORMATION
  Report Type: Spontaneous
  Country: US (occurrence: US)
  Receive Date: 20140527
  Receipt Date: 20140527
  Transmission Date: 20141212
  Serious: No
  Sender: FDA-Public Use
  Company Number: US-BAYER-2014-074447

PATIENT
  Age: 42 Year
  Sex: 0

DRUGS (2)
  1. AVELOX [Suspect]
     Dosage: UNK
     Dates: start: 20140415, end: 20140419
  2. XOPENEX [Suspect]
     Indication: ASTHMA
     Dosage: UNK

REACTIONS (3)
  - Ventricular extrasystoles [Not Recovered/Not Resolved]
  - Palpitations [Not Recovered/Not Resolved]
  - Asthma [Not Recovered/Not Resolved]
